FAERS Safety Report 13163377 (Version 1)
Quarter: 2017Q1

REPORT INFORMATION
  Report Type: Spontaneous
  Country: DE (occurrence: DE)
  Receive Date: 20170130
  Receipt Date: 20170130
  Transmission Date: 20170428
  Serious: Yes (Hospitalization)
  Sender: FDA-Public Use
  Company Number: DE-JNJFOC-20170123387

PATIENT
  Age: 60 Year
  Sex: Female

DRUGS (8)
  1. ANDROCUR [Suspect]
     Active Substance: CYPROTERONE ACETATE
     Indication: HORMONE REPLACEMENT THERAPY
     Route: 065
  2. BIOTIN [Concomitant]
     Active Substance: BIOTIN
     Indication: ALOPECIA
     Route: 065
  3. METOPROLOL. [Concomitant]
     Active Substance: METOPROLOL
     Route: 065
  4. XARELTO [Suspect]
     Active Substance: RIVAROXABAN
     Indication: DEEP VEIN THROMBOSIS
     Route: 048
  5. CLIMENE [Suspect]
     Active Substance: CYPROTERONE ACETATE\ESTRADIOL VALERATE
     Indication: HORMONE REPLACEMENT THERAPY
     Route: 065
  6. XARELTO [Suspect]
     Active Substance: RIVAROXABAN
     Indication: PULMONARY EMBOLISM
     Route: 048
  7. HEPARIN [Concomitant]
     Active Substance: HEPARIN SODIUM
     Indication: PULMONARY EMBOLISM
     Route: 065
     Dates: start: 20170113
  8. HEPARIN [Concomitant]
     Active Substance: HEPARIN SODIUM
     Indication: DEEP VEIN THROMBOSIS
     Route: 065
     Dates: start: 20170113

REACTIONS (4)
  - Vulval haemorrhage [Recovered/Resolved]
  - Thrombosis [Unknown]
  - Vulvovaginal erythema [Unknown]
  - Pulmonary embolism [Unknown]

NARRATIVE: CASE EVENT DATE: 201701
